FAERS Safety Report 9591811 (Version 2)
Quarter: 2013Q4

REPORT INFORMATION
  Report Type: Spontaneous
  Country: US (occurrence: US)
  Receive Date: 20131004
  Receipt Date: 20131004
  Transmission Date: 20140711
  Serious: No
  Sender: FDA-Public Use
  Company Number: US-AMGEN-USASP2012082596

PATIENT
  Age: 52 Year
  Sex: Female

DRUGS (3)
  1. ENBREL [Suspect]
     Indication: PSORIATIC ARTHROPATHY
     Dosage: 50 MG, 2 TIMES/WK
     Route: 058
     Dates: start: 201206
  2. SYNTHROID [Concomitant]
     Dosage: 25 MUG, UNK
  3. ENALAPRIL [Concomitant]
     Dosage: 5 MG, UNK

REACTIONS (3)
  - Arthritis [Unknown]
  - Drug ineffective [Unknown]
  - Psoriasis [Unknown]
